FAERS Safety Report 18121956 (Version 1)
Quarter: 2020Q3

REPORT INFORMATION
  Report Type: Spontaneous
  Country: CH (occurrence: CH)
  Receive Date: 20200807
  Receipt Date: 20200807
  Transmission Date: 20201103
  Serious: Yes (Life-Threatening, Other)
  Sender: FDA-Public Use
  Company Number: CH-TEVA-2020-CH-1810433

PATIENT
  Age: 65 Year
  Sex: Male

DRUGS (21)
  1. AMLODIPINE [Concomitant]
     Active Substance: AMLODIPINE BESYLATE
     Dates: start: 20200517, end: 20200617
  2. BACTRIM [Suspect]
     Active Substance: SULFAMETHOXAZOLE\TRIMETHOPRIM
     Dosage: TMP/SFH AT 160/800MG: 1?1?1
     Route: 048
     Dates: start: 20200611, end: 20200614
  3. METOPROLOL MEPHA ZOK [Suspect]
     Active Substance: METOPROLOL SUCCINATE
     Route: 048
     Dates: start: 20200608, end: 20200624
  4. TORASEMIDE [Concomitant]
     Active Substance: TORSEMIDE
  5. METOPROLOL MEPHA ZOK [Suspect]
     Active Substance: METOPROLOL SUCCINATE
     Dosage: 0.5?0?0.5
     Route: 048
     Dates: start: 20200526, end: 20200603
  6. CORDARONE [Suspect]
     Active Substance: AMIODARONE HYDROCHLORIDE
     Route: 048
     Dates: start: 20200615, end: 20200625
  7. MARCOUMAR [Concomitant]
     Active Substance: PHENPROCOUMON
     Dosage: IN ACCORDANCE WITH THE INR DOSAGE
     Route: 048
     Dates: start: 20200614
  8. ASPIRIN CARDIO [Concomitant]
     Active Substance: ASPIRIN
     Dosage: 100 MILLIGRAM DAILY; 1?0?0?0?PERMANENT THERAPY
     Route: 048
     Dates: start: 20200614
  9. PANTOPRAZOL [Concomitant]
     Active Substance: PANTOPRAZOLE SODIUM
     Dosage: 40 MILLIGRAM DAILY; PERMANENT THERAPY?1?0?0?0
     Route: 048
  10. PALLADONE [Concomitant]
     Active Substance: HYDROMORPHONE HYDROCHLORIDE
     Dosage: 8 MILLIGRAM DAILY; 1?0?1?0
     Route: 048
  11. BACTRIM [Suspect]
     Active Substance: SULFAMETHOXAZOLE\TRIMETHOPRIM
     Dosage: DOSING REGIMEN: 1?0.5?0.5
     Route: 048
     Dates: start: 20200614, end: 20200630
  12. CORDARONE [Suspect]
     Active Substance: AMIODARONE HYDROCHLORIDE
     Dosage: 200 MILLIGRAM DAILY; 1?0?0?0; ?04?JUN?2020 TO 13?JUN?2020: PAUSE
     Route: 048
     Dates: start: 20200419, end: 20200603
  13. LASIX [Concomitant]
     Active Substance: FUROSEMIDE
     Dates: start: 20200610, end: 20200618
  14. PREGABALIN. [Concomitant]
     Active Substance: PREGABALIN
     Dosage: 300 MILLIGRAM DAILY; PERMANENT THERAPY?1?0?1?0
     Route: 048
     Dates: start: 20200614
  15. DAFALGAN [Concomitant]
     Active Substance: ACETAMINOPHEN
     Dosage: 4000 MILLIGRAM DAILY; PERMANENT THERAPY?1?1?1?1
     Route: 048
  16. ROSUVASTATIN. [Concomitant]
     Active Substance: ROSUVASTATIN
     Dosage: 20 MILLIGRAM DAILY; PERMANENT THERAPY?0?1?0?0
     Route: 048
     Dates: start: 20200614
  17. METFORMIN [Concomitant]
     Active Substance: METFORMIN HYDROCHLORIDE
  18. METOLAZONE. [Concomitant]
     Active Substance: METOLAZONE
     Dates: start: 20200614, end: 20200617
  19. METOPROLOL MEPHA ZOK [Suspect]
     Active Substance: METOPROLOL SUCCINATE
     Dosage: 100 MILLIGRAM DAILY; 1?0?1
     Route: 048
     Dates: start: 20200603, end: 20200607
  20. CORDARONE [Suspect]
     Active Substance: AMIODARONE HYDROCHLORIDE
     Dosage: 2?1?2?0
     Route: 048
     Dates: start: 20200614, end: 20200615
  21. LISINOPRIL. [Concomitant]
     Active Substance: LISINOPRIL

REACTIONS (3)
  - Acute kidney injury [Recovering/Resolving]
  - Hyperkalaemia [Recovered/Resolved]
  - Bradycardia [Recovered/Resolved]

NARRATIVE: CASE EVENT DATE: 20200612
